FAERS Safety Report 8142385-9 (Version None)
Quarter: 2012Q1

REPORT INFORMATION
  Report Type: 
  Country: None (occurrence: None)
  Receive Date: 20120216
  Receipt Date: 20120207
  Transmission Date: 20120608
  Serious: Yes (Hospitalization)
  Sender: FDA-Public Use
  Company Number: US-ASTRAZENECA-2011SE55681

PATIENT
  Age: 27 Year
  Sex: Female
  Weight: 54.4 kg

DRUGS (35)
  1. SEROQUEL [Suspect]
     Route: 048
     Dates: start: 20110803
  2. SEROQUEL [Suspect]
     Route: 048
  3. SEROQUEL [Suspect]
     Route: 048
     Dates: start: 20110803
  4. LAMICTAL [Suspect]
     Route: 048
     Dates: start: 20110901
  5. CARBATROL [Suspect]
     Route: 065
     Dates: start: 20110718
  6. SEROQUEL [Suspect]
     Route: 048
     Dates: start: 20110718
  7. SEROQUEL [Suspect]
     Route: 048
  8. LAMICTAL [Suspect]
     Route: 048
  9. SEROQUEL [Suspect]
     Indication: BIPOLAR I DISORDER
     Route: 048
     Dates: start: 20110718
  10. SEROQUEL [Suspect]
     Route: 048
  11. LAMICTAL [Suspect]
     Route: 048
  12. LAMICTAL [Suspect]
     Dosage: 300 MGS AM 100 MGS HS
  13. ATIVAN [Concomitant]
     Indication: ANXIETY
  14. ATIVAN [Concomitant]
     Indication: SLEEP DISORDER
  15. SEROQUEL [Suspect]
     Route: 048
     Dates: start: 20110803
  16. SEROQUEL [Suspect]
     Route: 048
  17. SEROQUEL [Suspect]
     Route: 048
  18. LAMICTAL [Suspect]
     Dosage: 300 MGS AM 100 MGS HS
  19. ATIVAN [Concomitant]
     Route: 048
     Dates: start: 20110901
  20. ATIVAN [Concomitant]
     Route: 048
     Dates: start: 20110901
  21. SEROQUEL [Suspect]
     Route: 048
     Dates: start: 20110803
  22. SEROQUEL [Suspect]
     Route: 048
  23. LAMICTAL [Suspect]
     Indication: MOOD SWINGS
     Route: 048
  24. LAMICTAL [Suspect]
     Route: 048
     Dates: start: 20110901
  25. ATIVAN [Concomitant]
     Indication: PANIC ATTACK
  26. SEROQUEL [Suspect]
     Route: 048
     Dates: start: 20110803
  27. SEROQUEL [Suspect]
     Route: 048
     Dates: start: 20110803
  28. SEROQUEL [Suspect]
     Route: 048
  29. SEROQUEL [Suspect]
     Route: 048
     Dates: start: 20110803
  30. SEROQUEL [Suspect]
     Dosage: DECREASE DOSE TO LESS THAN 650 MG
     Route: 048
  31. SEROQUEL [Suspect]
     Dosage: DECREASE DOSE TO LESS THAN 650 MG
     Route: 048
  32. SEROQUEL [Suspect]
     Route: 048
     Dates: start: 20110803
  33. SEROQUEL [Suspect]
     Route: 048
  34. LAMICTAL [Suspect]
     Indication: AFFECTIVE DISORDER
     Route: 048
  35. ATIVAN [Concomitant]
     Route: 048
     Dates: start: 20110901

REACTIONS (18)
  - HYPOMANIA [None]
  - NERVOUSNESS [None]
  - CHEST PAIN [None]
  - FEELING ABNORMAL [None]
  - HEART RATE INCREASED [None]
  - HEART RATE IRREGULAR [None]
  - ABNORMAL BEHAVIOUR [None]
  - DRUG DOSE OMISSION [None]
  - INSOMNIA [None]
  - ANXIETY DISORDER [None]
  - MUSCLE SPASMS [None]
  - MANIA [None]
  - PSYCHOTIC DISORDER [None]
  - PALPITATIONS [None]
  - PSYCHOSOMATIC DISEASE [None]
  - AMNESIA [None]
  - AGITATION [None]
  - OBSESSIVE-COMPULSIVE DISORDER [None]
